FAERS Safety Report 25120330 (Version 2)
Quarter: 2025Q2

REPORT INFORMATION
  Report Type: Spontaneous
  Country: US (occurrence: US)
  Receive Date: 20250325
  Receipt Date: 20250403
  Transmission Date: 20250717
  Serious: Yes (Hospitalization)
  Sender: MYLAN
  Company Number: US-MYLANLABS-2025M1023786

PATIENT
  Sex: Female
  Weight: 65.77 kg

DRUGS (2)
  1. DILANTIN [Suspect]
     Active Substance: PHENYTOIN
     Indication: Epilepsy
     Dosage: 2 DOSAGE FORM, BID (TWO CAPSULES EVERY MORNING AND TWO CAPSULES AT NIGHT)
  2. LEVETIRACETAM [Concomitant]
     Active Substance: LEVETIRACETAM
     Indication: Epilepsy
     Dosage: 1000 MILLIGRAM, PM (AT NIGHT)

REACTIONS (6)
  - Feeling abnormal [Unknown]
  - Dyskinesia [Unknown]
  - Muscle twitching [Unknown]
  - Product substitution issue [Unknown]
  - Drug ineffective [Unknown]
  - Product label issue [Unknown]
